FAERS Safety Report 16677364 (Version 1)
Quarter: 2019Q3

REPORT INFORMATION
  Report Type: Spontaneous
  Country: US (occurrence: US)
  Receive Date: 20190807
  Receipt Date: 20190807
  Transmission Date: 20191004
  Serious: No
  Sender: FDA-Public Use
  Company Number: US-JNJFOC-20190744015

PATIENT

DRUGS (1)
  1. INVEGA SUSTENNA [Suspect]
     Active Substance: PALIPERIDONE PALMITATE
     Indication: PRODUCT USE IN UNAPPROVED INDICATION
     Dosage: DAY ONE
     Route: 030

REACTIONS (2)
  - Off label use [Unknown]
  - Incorrect dose administered [Unknown]
